FAERS Safety Report 9398124 (Version 2)
Quarter: 2013Q3

REPORT INFORMATION
  Report Type: Spontaneous
  Country: US (occurrence: US)
  Receive Date: 20130712
  Receipt Date: 20130730
  Transmission Date: 20140515
  Serious: Yes (Death, Life-Threatening)
  Sender: FDA-Public Use
  Company Number: US-GLAXOSMITHKLINE-A1032357A

PATIENT
  Age: 63 Year
  Sex: Female
  Weight: 57.3 kg

DRUGS (8)
  1. AMERGE [Suspect]
     Indication: MIGRAINE
     Dosage: 2.5MG PER DAY
     Route: 048
     Dates: start: 2005
  2. BOTOX [Concomitant]
  3. UNKNOWN MEDICATION [Concomitant]
  4. MAXALT [Concomitant]
  5. FAMOTIDINE [Concomitant]
  6. ESTRADIOL [Concomitant]
  7. AMBIEN [Concomitant]
  8. LEVOTHROID [Concomitant]

REACTIONS (1)
  - Aortic dissection [Fatal]
